FAERS Safety Report 14186576 (Version 1)
Quarter: 2017Q4

REPORT INFORMATION
  Report Type: Spontaneous
  Country: US (occurrence: US)
  Receive Date: 20171114
  Receipt Date: 20171114
  Transmission Date: 20180321
  Serious: No
  Sender: FDA-Public Use
  Company Number: US-SHIRE-US201722643

PATIENT
  Sex: Male

DRUGS (1)
  1. LIALDA [Suspect]
     Active Substance: MESALAMINE
     Indication: PRODUCT USED FOR UNKNOWN INDICATION
     Dosage: 1.2 G, 3 CAPSULES IN THE MORNNG
     Route: 048

REACTIONS (4)
  - Malaise [Unknown]
  - Inappropriate schedule of drug administration [Unknown]
  - Diarrhoea [Unknown]
  - Abdominal pain upper [Unknown]
